APPROVED DRUG PRODUCT: TERIFLUNOMIDE
Active Ingredient: TERIFLUNOMIDE
Strength: 14MG
Dosage Form/Route: TABLET;ORAL
Application: A209639 | Product #002 | TE Code: AB
Applicant: BIOCON PHARMA LTD
Approved: Mar 13, 2023 | RLD: No | RS: No | Type: RX